FAERS Safety Report 6929859-0 (Version None)
Quarter: 2010Q3

REPORT INFORMATION
  Report Type: 
  Country: None (occurrence: None)
  Receive Date: 20100818
  Receipt Date: 20100813
  Transmission Date: 20110219
  Serious: Yes (Death)
  Sender: FDA-Public Use
  Company Number: IT-CELGENEUS-083-21880-10081226

PATIENT
  Sex: Male
  Weight: 69 kg

DRUGS (4)
  1. REVLIMID [Suspect]
     Indication: MULTIPLE MYELOMA
     Route: 048
     Dates: start: 20100428, end: 20100518
  2. REVLIMID [Suspect]
     Route: 048
     Dates: start: 20100604
  3. DEXAMETHASONE [Suspect]
     Indication: MULTIPLE MYELOMA
     Route: 048
     Dates: start: 20100428, end: 20100527
  4. DEXAMETHASONE [Suspect]
     Route: 048
     Dates: start: 20100529

REACTIONS (2)
  - CARDIAC ARREST [None]
  - PNEUMONITIS [None]
